FAERS Safety Report 4970774-X (Version None)
Quarter: 2006Q2

REPORT INFORMATION
  Report Type: 
  Country: None (occurrence: None)
  Receive Date: 20060406
  Receipt Date: 20060322
  Transmission Date: 20061013
  Serious: No
  Sender: FDA-Public Use
  Company Number: 2006EU001047

PATIENT
  Age: 38 Year
  Sex: Male

DRUGS (4)
  1. PROGRAF [Suspect]
     Indication: RENAL AND PANCREAS TRANSPLANT
  2. MYCOPHENOLATE MOFETIL [Suspect]
     Indication: RENAL AND PANCREAS TRANSPLANT
  3. PREDNISOLONE [Suspect]
     Indication: RENAL AND PANCREAS TRANSPLANT
  4. ANTITHYMOCYTE IMMUNOGLOBULIN (ANTITHYMOCYTE IMMUNOGLOBULIN) [Suspect]
     Indication: RENAL AND PANCREAS TRANSPLANT

REACTIONS (10)
  - CARPAL TUNNEL SYNDROME [None]
  - INADEQUATE ANALGESIA [None]
  - LIGAMENT DISORDER [None]
  - MOTOR DYSFUNCTION [None]
  - NERVE COMPRESSION [None]
  - PAIN IN EXTREMITY [None]
  - POST PROCEDURAL COMPLICATION [None]
  - SENSORY LOSS [None]
  - SWELLING [None]
  - SYSTEMIC INFLAMMATORY RESPONSE SYNDROME [None]
